FAERS Safety Report 9286086 (Version 1)
Quarter: 2013Q2

REPORT INFORMATION
  Report Type: Spontaneous
  Country: US (occurrence: None)
  Receive Date: 20130510
  Receipt Date: 20130510
  Transmission Date: 20140414
  Serious: Yes (Hospitalization)
  Sender: FDA-Public Use
  Company Number: None

PATIENT
  Age: 66 Year
  Sex: Male

DRUGS (1)
  1. AMOXICILLIN/CLAVULANATE [Suspect]
     Dates: start: 20130131, end: 20130213

REACTIONS (10)
  - Feeling abnormal [None]
  - Pruritus [None]
  - Yellow skin [None]
  - Chromaturia [None]
  - Headache [None]
  - Drug reaction with eosinophilia and systemic symptoms [None]
  - Nausea [None]
  - Vomiting [None]
  - Diarrhoea [None]
  - Normochromic normocytic anaemia [None]
